FAERS Safety Report 21527809 (Version 3)
Quarter: 2022Q4

REPORT INFORMATION
  Report Type: Spontaneous
  Country: US (occurrence: US)
  Receive Date: 20221031
  Receipt Date: 20221121
  Transmission Date: 20230113
  Serious: Yes (Life-Threatening, Hospitalization, Other)
  Sender: FDA-Public Use
  Company Number: US-PFIZER INC-PV202200084346

PATIENT
  Age: 8 Year
  Sex: Male

DRUGS (2)
  1. FENTANYL CITRATE [Interacting]
     Active Substance: FENTANYL CITRATE
     Dosage: UNK
  2. XYLAZINE [Interacting]
     Active Substance: XYLAZINE
     Dosage: UNK

REACTIONS (7)
  - Overdose [Recovered/Resolved]
  - Loss of consciousness [Recovered/Resolved]
  - Respiratory depression [Recovered/Resolved]
  - Toxicity to various agents [Recovered/Resolved]
  - Mental status changes [Recovered/Resolved]
  - Drug abuse [Recovered/Resolved]
  - Drug interaction [Unknown]
